FAERS Safety Report 20134097 (Version 2)
Quarter: 2021Q4

REPORT INFORMATION
  Report Type: Spontaneous
  Country: JP (occurrence: JP)
  Receive Date: 20211201
  Receipt Date: 20211214
  Transmission Date: 20220304
  Serious: Yes (Hospitalization)
  Sender: FDA-Public Use
  Company Number: JP-ASTELLAS-2021JP022897

PATIENT
  Age: 83 Year
  Sex: Male

DRUGS (2)
  1. XOSPATA [Suspect]
     Active Substance: GILTERITINIB
     Indication: Acute myeloid leukaemia recurrent
     Route: 048
  2. FLUCONAZOLE [Concomitant]
     Active Substance: FLUCONAZOLE
     Indication: Product used for unknown indication
     Dosage: UNK UNK, UNKNOWN FREQ.
     Route: 042
     Dates: start: 20201027

REACTIONS (1)
  - Urinary tract infection [Recovered/Resolved]

NARRATIVE: CASE EVENT DATE: 20211028
